FAERS Safety Report 9966197 (Version 2)
Quarter: 2014Q1

REPORT INFORMATION
  Report Type: Report from Study
  Country: US (occurrence: US)
  Receive Date: 20140305
  Receipt Date: 20140305
  Transmission Date: 20141002
  Serious: No
  Sender: FDA-Public Use
  Company Number: US-ABBVIE-13P-163-1101558-00

PATIENT
  Age: 62 Year
  Sex: Female
  Weight: 47.67 kg

DRUGS (3)
  1. HUMIRA [Suspect]
     Indication: CROHN^S DISEASE
     Route: 058
     Dates: start: 201109, end: 201303
  2. NEURONTIN [Concomitant]
     Indication: NEUROPATHY PERIPHERAL
     Dosage: 400MG 3 PILLS 3 TIMES A DAY
  3. AVINZA [Concomitant]
     Indication: PAIN

REACTIONS (3)
  - Asthenia [Recovering/Resolving]
  - Nocturia [Recovering/Resolving]
  - Herpes zoster [Recovering/Resolving]
